FAERS Safety Report 7590603-8 (Version None)
Quarter: 2011Q3

REPORT INFORMATION
  Report Type: 
  Country: None (occurrence: None)
  Receive Date: 20110705
  Receipt Date: 20110628
  Transmission Date: 20111222
  Serious: Yes (Death, Life-Threatening, Hospitalization)
  Sender: FDA-Public Use
  Company Number: JP-PFIZER INC-2011117939

PATIENT
  Age: 72 Year
  Sex: Male
  Weight: 63 kg

DRUGS (11)
  1. METFORMIN HCL [Concomitant]
     Dosage: 250 MG, 1X/DAY
     Route: 048
  2. FAMOTIDINE [Concomitant]
     Dosage: 20 MG, 1X/DAY
     Route: 048
  3. PRIMPERAN TAB [Concomitant]
     Dosage: 5 MG, 3X/DAY
     Route: 048
  4. POLARAMINE [Concomitant]
     Indication: PROPHYLAXIS
     Dosage: 5 MG, WEEKLY
     Route: 048
  5. AMARYL [Concomitant]
     Dosage: 1 MG, 3X/DAY
     Route: 048
  6. LORELCO [Concomitant]
     Dosage: 250 MG, 1X/DAY
     Route: 048
  7. LAC B [Concomitant]
     Dosage: 1 G, 3X/DAY
     Route: 048
  8. TEMSIROLIMUS [Suspect]
     Indication: RENAL CELL CARCINOMA
     Dosage: 25 MG, WEEKLY
     Route: 042
     Dates: start: 20110215, end: 20110405
  9. ADALAT [Concomitant]
     Dosage: 10 MG, 1X/DAY
     Route: 048
  10. ZOLPIDEM [Concomitant]
     Dosage: 10 MG, 1X/DAY
     Route: 048
  11. AMINO ACIDS NOS/CARBOHYDRATES NOS/ELECTROLYTES NOS [Concomitant]
     Dosage: 500 ML, 1X/DAY
     Route: 042
     Dates: start: 20110301

REACTIONS (5)
  - NUTRITIONAL CONDITION ABNORMAL [None]
  - HYPONATRAEMIA [None]
  - DYSPNOEA [None]
  - PNEUMONIA [None]
  - ANAEMIA [None]
